FAERS Safety Report 6529325-0 (Version None)
Quarter: 2010Q1

REPORT INFORMATION
  Report Type: 
  Country: None (occurrence: None)
  Receive Date: 20100107
  Receipt Date: 20091230
  Transmission Date: 20100710
  Serious: Yes (Hospitalization)
  Sender: FDA-Public Use
  Company Number: PHHY2009IT51433

PATIENT
  Sex: Female

DRUGS (5)
  1. LAMISIL [Suspect]
     Indication: ONYCHOMYCOSIS
     Dosage: 250 MG/DAY
     Route: 048
     Dates: start: 20090914, end: 20091107
  2. CONCOR [Concomitant]
  3. COVERSYL [Concomitant]
  4. VALSARTAN AND HYDROCHLOROTHIAZIDE [Concomitant]
  5. CRESTOR [Concomitant]

REACTIONS (3)
  - DYSGEUSIA [None]
  - NAUSEA [None]
  - PAROSMIA [None]
